FAERS Safety Report 4789628-7 (Version None)
Quarter: 2005Q3

REPORT INFORMATION
  Report Type: 
  Country: None (occurrence: None)
  Receive Date: 20050914
  Receipt Date: 20041213
  Transmission Date: 20060218
  Serious: Yes (Death)
  Sender: FDA-Public Use
  Company Number: 163-20785-04120400

PATIENT
  Age: 79 Year
  Sex: Female

DRUGS (3)
  1. THALOMID [Suspect]
     Indication: METASTASES TO CENTRAL NERVOUS SYSTEM
     Dosage: 50 MG, BID, ORAL
     Route: 048
     Dates: start: 20040901, end: 20040101
  2. THALOMID [Suspect]
     Indication: METASTASES TO LIVER
     Dosage: 50 MG, BID, ORAL
     Route: 048
     Dates: start: 20040901, end: 20040101
  3. THALOMID [Suspect]
     Indication: METASTATIC MALIGNANT MELANOMA
     Dosage: 50 MG, BID, ORAL
     Route: 048
     Dates: start: 20040901, end: 20040101

REACTIONS (2)
  - DEATH [None]
  - DISEASE PROGRESSION [None]
